FAERS Safety Report 25017192 (Version 1)
Quarter: 2025Q1

REPORT INFORMATION
  Report Type: Other
  Country: JP (occurrence: JP)
  Receive Date: 20250227
  Receipt Date: 20250227
  Transmission Date: 20250409
  Serious: Yes (Hospitalization, Other)
  Sender: ALVOGEN
  Company Number: JP-ALVOGEN-2025096331

PATIENT
  Age: 3 Year
  Sex: Female

DRUGS (4)
  1. LEVOTHYROXINE [Suspect]
     Active Substance: LEVOTHYROXINE
     Indication: Hypothyroidism
  2. RITUXIMAB [Concomitant]
     Active Substance: RITUXIMAB
     Indication: Nephrotic syndrome
  3. VITAMINS [Concomitant]
     Active Substance: VITAMINS
     Indication: Nephrotic syndrome
  4. MYCOPHENOLATE MOFETIL [Concomitant]
     Active Substance: MYCOPHENOLATE MOFETIL
     Indication: Nephrotic syndrome

REACTIONS (2)
  - Wernicke^s encephalopathy [Recovered/Resolved]
  - Vitamin B1 deficiency [Recovered/Resolved]
